FAERS Safety Report 16223292 (Version 1)
Quarter: 2019Q2

REPORT INFORMATION
  Report Type: Spontaneous
  Country: US (occurrence: US)
  Receive Date: 20190422
  Receipt Date: 20190422
  Transmission Date: 20190711
  Serious: No
  Sender: FDA-Public Use
  Company Number: US-PFIZER INC-2019165810

PATIENT
  Age: 75 Year
  Sex: Female
  Weight: 56.7 kg

DRUGS (10)
  1. CALCIUM + VITAMIN D [CALCIUM;COLECALCIFEROL] [Concomitant]
     Dosage: UNK
  2. TYLENOL [Concomitant]
     Active Substance: ACETAMINOPHEN
     Indication: OSTEOARTHRITIS
     Dosage: UNK
  3. ASPIRIN [ACETYLSALICYLIC ACID] [Concomitant]
     Active Substance: ASPIRIN
     Indication: CARDIAC DISORDER
     Dosage: 81 MG, UNK
  4. LOSARTAN. [Concomitant]
     Active Substance: LOSARTAN
     Dosage: 25 MG, 1X/DAY
  5. IRON [Concomitant]
     Active Substance: IRON
     Dosage: 65 MG, 2X/DAY
  6. PANTOPRAZOLE [Concomitant]
     Active Substance: PANTOPRAZOLE
     Indication: ABDOMINAL DISCOMFORT
     Dosage: 40 MG, 1X/DAY
  7. ATORVASTATIN [Concomitant]
     Active Substance: ATORVASTATIN
     Dosage: 20 MG, 1X/DAY
  8. SPIRONOLACTONE. [Concomitant]
     Active Substance: SPIRONOLACTONE
     Dosage: UNK, 1X/DAY
  9. EUCRISA [Suspect]
     Active Substance: CRISABOROLE
     Indication: PIGMENTATION DISORDER
     Dosage: UNK
     Dates: start: 20190411
  10. METOPROLOL. [Concomitant]
     Active Substance: METOPROLOL
     Indication: MYOCARDIAL INFARCTION
     Dosage: 25 MG, 1X/DAY

REACTIONS (6)
  - Sunburn [Unknown]
  - Pain [Unknown]
  - Application site swelling [Unknown]
  - Product use in unapproved indication [Unknown]
  - Burning sensation [Unknown]
  - Application site erythema [Unknown]

NARRATIVE: CASE EVENT DATE: 201904
